FAERS Safety Report 24286232 (Version 1)
Quarter: 2024Q3

REPORT INFORMATION
  Report Type: Spontaneous
  Country: US (occurrence: US)
  Receive Date: 20240905
  Receipt Date: 20240905
  Transmission Date: 20241017
  Serious: Yes (Other)
  Sender: PFIZER
  Company Number: US-PFIZER INC-PV202400115916

PATIENT
  Age: 42 Year
  Sex: Female

DRUGS (3)
  1. PREMPRO [Suspect]
     Active Substance: ESTROGENS, CONJUGATED\MEDROXYPROGESTERONE ACETATE
     Dosage: ONCE A DAY FOR 28 DAYS
     Route: 048
  2. PROTONIX [Suspect]
     Active Substance: PANTOPRAZOLE SODIUM
     Dosage: QD (ONCE DAILY) 90 DAYS
     Route: 048
  3. CELEBREX [Suspect]
     Active Substance: CELECOXIB
     Dosage: QD (ONCE DAILY) 90 DAYS
     Route: 048

REACTIONS (10)
  - Diabetes mellitus [Not Recovered/Not Resolved]
  - Autism spectrum disorder [Not Recovered/Not Resolved]
  - Fungal skin infection [Not Recovered/Not Resolved]
  - Back pain [Not Recovered/Not Resolved]
  - Agoraphobia [Not Recovered/Not Resolved]
  - Amenorrhoea [Not Recovered/Not Resolved]
  - Menopause [Not Recovered/Not Resolved]
  - Depression [Not Recovered/Not Resolved]
  - Hyperlipidaemia [Not Recovered/Not Resolved]
  - Stress [Not Recovered/Not Resolved]

NARRATIVE: CASE EVENT DATE: 20141205
